FAERS Safety Report 13155580 (Version 2)
Quarter: 2017Q1

REPORT INFORMATION
  Report Type: Report from Study
  Country: CA (occurrence: CA)
  Receive Date: 20170126
  Receipt Date: 20170324
  Transmission Date: 20170428
  Serious: Yes (Death)
  Sender: FDA-Public Use
  Company Number: CA-HLSUS-2017-CA-000084

PATIENT
  Age: 30 Year
  Sex: Male

DRUGS (2)
  1. INVEGA SUSTENNA [Concomitant]
     Active Substance: PALIPERIDONE PALMITATE
     Indication: SCHIZOPHRENIA
     Dosage: 50 MG
     Route: 030
     Dates: start: 20161205, end: 20170120
  2. CLOZARIL [Suspect]
     Active Substance: CLOZAPINE
     Indication: SCHIZOPHRENIA
     Route: 048
     Dates: start: 20160627

REACTIONS (1)
  - Death [Fatal]

NARRATIVE: CASE EVENT DATE: 20170120
